FAERS Safety Report 5379766-2 (Version None)
Quarter: 2007Q3

REPORT INFORMATION
  Report Type: 
  Country: None (occurrence: None)
  Receive Date: 20070706
  Receipt Date: 20070703
  Transmission Date: 20080115
  Serious: Yes (Hospitalization, Other)
  Sender: FDA-Public Use
  Company Number: HQWYE499510NOV05

PATIENT
  Sex: Male
  Weight: 73 kg

DRUGS (7)
  1. RAPAMUNE [Suspect]
     Indication: PROPHYLAXIS AGAINST TRANSPLANT REJECTION
     Route: 048
     Dates: start: 20050904
  2. PREDNISONE TAB [Concomitant]
     Route: 048
     Dates: start: 20050910, end: 20050916
  3. PREDNISONE TAB [Concomitant]
     Route: 048
     Dates: start: 20050917
  4. PREDNISONE TAB [Concomitant]
     Route: 048
     Dates: start: 20050927
  5. CYCLOSPORINE [Concomitant]
     Route: 048
     Dates: start: 20050910, end: 20050915
  6. CYCLOSPORINE [Concomitant]
     Route: 048
     Dates: start: 20050916, end: 20050916
  7. CYCLOSPORINE [Concomitant]
     Route: 048
     Dates: start: 20050917

REACTIONS (1)
  - RENAL IMPAIRMENT [None]
